FAERS Safety Report 5620750-9 (Version None)
Quarter: 2008Q1

REPORT INFORMATION
  Report Type: 
  Country: None (occurrence: None)
  Receive Date: 20080208
  Receipt Date: 20080205
  Transmission Date: 20080703
  Serious: Yes (Disabling)
  Sender: FDA-Public Use
  Company Number: US-MERCK-0710USA01918

PATIENT
  Age: 66 Year
  Sex: Female

DRUGS (16)
  1. JANUVIA [Suspect]
     Indication: DIABETES MELLITUS
     Route: 048
     Dates: start: 20070605, end: 20071001
  2. ENABLEX [Concomitant]
     Route: 065
  3. LIPITOR [Concomitant]
     Route: 065
  4. LANTUS [Concomitant]
     Route: 065
  5. HUMALOG [Concomitant]
     Route: 065
  6. ASPIRIN [Concomitant]
     Route: 065
  7. ATENOLOL [Concomitant]
     Route: 065
  8. COZAAR [Concomitant]
     Route: 065
  9. DIGOXIN [Concomitant]
     Route: 065
  10. FUROSEMIDE [Concomitant]
     Route: 065
  11. MAXAIR [Concomitant]
     Route: 065
  12. METOLAZONE [Concomitant]
     Route: 065
  13. POTASSIUM CHLORIDE [Concomitant]
     Route: 065
  14. PROTONIX [Concomitant]
     Route: 065
  15. PULMICORT [Concomitant]
     Route: 065
  16. XOPENEX [Concomitant]
     Route: 065

REACTIONS (3)
  - ASTHMA [None]
  - SEPSIS [None]
  - SINUSITIS [None]
